FAERS Safety Report 23211330 (Version 1)
Quarter: 2023Q4

REPORT INFORMATION
  Report Type: Spontaneous
  Country: FR (occurrence: FR)
  Receive Date: 20231121
  Receipt Date: 20231121
  Transmission Date: 20240109
  Serious: Yes (Hospitalization, Other)
  Sender: FDA-Public Use
  Company Number: None

PATIENT

DRUGS (1)
  1. SUBUTEX [Suspect]
     Active Substance: BUPRENORPHINE HYDROCHLORIDE
     Indication: Product used for unknown indication
     Dosage: UNK (TWO INTRAVENOUS INJECTIONS PER WEEK ON SVI (TABLET DILUTED WITH TAP WATER))
     Route: 042

REACTIONS (6)
  - Systemic candida [Recovering/Resolving]
  - Starvation [Recovering/Resolving]
  - Medical device site infection [Recovering/Resolving]
  - Product use issue [Recovering/Resolving]
  - Bacteraemia [Recovering/Resolving]
  - Drug abuse [Not Recovered/Not Resolved]

NARRATIVE: CASE EVENT DATE: 20230929
